FAERS Safety Report 8033035-0 (Version None)
Quarter: 2011Q4

REPORT INFORMATION
  Report Type: 
  Country: None (occurrence: None)
  Receive Date: 20111223
  Receipt Date: 20111212
  Transmission Date: 20120403
  Serious: Yes (Hospitalization, Other)
  Sender: FDA-Public Use
  Company Number: 2011SP058264

PATIENT
  Sex: Male

DRUGS (4)
  1. RIBAVIRIN [Suspect]
     Indication: HEPATITIS C
     Dates: start: 20111202
  2. RIBAVIRIN [Suspect]
     Indication: HEPATITIS C
     Dates: start: 20060303, end: 20060324
  3. PEG-INTRON [Suspect]
     Indication: HEPATITIS C
     Dates: start: 20060303, end: 20060324
  4. PEG-INTRON [Suspect]
     Indication: HEPATITIS C
     Dates: start: 20111202

REACTIONS (2)
  - RENAL INFARCT [None]
  - THROMBOSIS [None]
